FAERS Safety Report 17541039 (Version 3)
Quarter: 2020Q2

REPORT INFORMATION
  Report Type: Spontaneous
  Country: US (occurrence: US)
  Receive Date: 20200313
  Receipt Date: 20200424
  Transmission Date: 20200713
  Serious: Yes (Other)
  Sender: FDA-Public Use
  Company Number: US-ASTRAZENECA-2020SE35947

PATIENT
  Sex: Female

DRUGS (2)
  1. METFORMIN [Suspect]
     Active Substance: METFORMIN HYDROCHLORIDE
     Dosage: UNKNOWN
     Route: 048
  2. BYDUREON [Suspect]
     Active Substance: EXENATIDE
     Dosage: 2.0MG UNKNOWN
     Route: 058

REACTIONS (20)
  - Large intestine infection [Unknown]
  - Gastric cyst [Unknown]
  - Needle issue [Unknown]
  - Device leakage [Unknown]
  - Colonic abscess [Unknown]
  - Neoplasm malignant [Unknown]
  - Irritable bowel syndrome [Unknown]
  - Intestinal cyst [Unknown]
  - Upper-airway cough syndrome [Unknown]
  - Pancreatic cyst [Unknown]
  - Circumstance or information capable of leading to device use error [Unknown]
  - Sinus polyp [Unknown]
  - Renal cyst [Unknown]
  - Abdominal distension [Unknown]
  - Carcinoembryonic antigen increased [Recovering/Resolving]
  - Goitre [Unknown]
  - Drug hypersensitivity [Unknown]
  - Diverticulitis [Unknown]
  - Pancreatic disorder [Unknown]
  - Thyroid cyst [Unknown]
